FAERS Safety Report 9438371 (Version 2)
Quarter: 2014Q1

REPORT INFORMATION
  Report Type: Spontaneous
  Country: US (occurrence: US)
  Receive Date: 20130802
  Receipt Date: 20140304
  Transmission Date: 20141002
  Serious: No
  Sender: FDA-Public Use
  Company Number: US-009507513-1307USA017139

PATIENT
  Sex: Female
  Weight: 79.37 kg

DRUGS (2)
  1. NUVARING [Suspect]
     Indication: CONTRACEPTION
     Dosage: UNK
     Route: 067
     Dates: start: 201203, end: 20120714
  2. NUVARING [Suspect]
     Dosage: UNK
     Route: 067
     Dates: start: 201001

REACTIONS (18)
  - Anticoagulation drug level below therapeutic [Unknown]
  - Deep vein thrombosis [Unknown]
  - Deep vein thrombosis [Not Recovered/Not Resolved]
  - Coagulopathy [Unknown]
  - Hypercoagulation [Unknown]
  - Varicose vein [Unknown]
  - Smear cervix abnormal [Unknown]
  - Papilloma viral infection [Unknown]
  - Cytology abnormal [Unknown]
  - Cervical dysplasia [Unknown]
  - Drug level below therapeutic [Unknown]
  - Food allergy [Unknown]
  - Food allergy [Unknown]
  - Polycystic ovaries [Unknown]
  - Iron deficiency anaemia [Unknown]
  - Asthma [Unknown]
  - Glucose tolerance impaired [Unknown]
  - Obesity [Unknown]
